APPROVED DRUG PRODUCT: NIZATIDINE
Active Ingredient: NIZATIDINE
Strength: 300MG
Dosage Form/Route: CAPSULE;ORAL
Application: A090618 | Product #002
Applicant: GLENMARK PHARMACEUTICALS INC USA
Approved: Jul 15, 2011 | RLD: No | RS: No | Type: DISCN